FAERS Safety Report 10050282 (Version 2)
Quarter: 2014Q3

REPORT INFORMATION
  Report Type: Spontaneous
  Country: IT (occurrence: IT)
  Receive Date: 20140401
  Receipt Date: 20140710
  Transmission Date: 20150326
  Serious: No
  Sender: FDA-Public Use
  Company Number: PHHY2014IT035894

PATIENT
  Age: 68 Year
  Sex: Male

DRUGS (3)
  1. AMOXICILLIN + CLAVULANATE POTASSIUM [Suspect]
     Active Substance: AMOXICILLIN\CLAVULANATE POTASSIUM
     Dosage: 1 G, ONCE/SINGLE
     Route: 048
     Dates: start: 20140314, end: 20140314
  2. MEDROL [Concomitant]
     Active Substance: METHYLPREDNISOLONE
  3. CICLOSPORIN [Concomitant]
     Active Substance: CYCLOSPORINE

REACTIONS (4)
  - Tremor [Recovered/Resolved]
  - Rash [Recovered/Resolved]
  - Hypothermia [Recovered/Resolved]
  - Diarrhoea [Recovered/Resolved]

NARRATIVE: CASE EVENT DATE: 20140314
